FAERS Safety Report 6125989-4 (Version None)
Quarter: 2009Q1

REPORT INFORMATION
  Report Type: 
  Country: None (occurrence: None)
  Receive Date: 20090320
  Receipt Date: 20090317
  Transmission Date: 20090719
  Serious: Yes (Other)
  Sender: FDA-Public Use
  Company Number: US-ELI_LILLY_AND_COMPANY-US200805000683

PATIENT
  Sex: Male
  Weight: 84.807 kg

DRUGS (15)
  1. BYETTA [Suspect]
     Indication: TYPE 2 DIABETES MELLITUS
     Dosage: 5 UG, UNK
     Route: 058
     Dates: start: 20061201, end: 20070101
  2. BYETTA [Suspect]
     Dosage: 10 UG, 2/D
     Route: 058
     Dates: start: 20070101, end: 20080501
  3. BYETTA [Suspect]
     Dosage: 5 UG, 2/D
     Dates: start: 20090301
  4. JANUVIA [Concomitant]
     Indication: TYPE 2 DIABETES MELLITUS
     Dates: start: 20080401, end: 20090301
  5. METFORMIN HCL [Concomitant]
     Indication: TYPE 2 DIABETES MELLITUS
     Dosage: 1500 MG, EACH EVENING
     Route: 048
     Dates: start: 20061201
  6. ATENOLOL [Concomitant]
     Indication: CARDIAC DISORDER
     Dosage: 25 MG, DAILY (1/D)
  7. SIMVASTATIN [Concomitant]
     Dosage: 40 MG, DAILY (1/D)
     Route: 048
  8. VITAMIN B12                        /00056201/ [Concomitant]
     Indication: MALABSORPTION
     Dosage: 1000 MG, 3/W
     Dates: start: 20030501
  9. CENTRUM SILVER [Concomitant]
     Indication: MALABSORPTION
     Dosage: UNK, 2/D
     Dates: start: 20020501
  10. CITRACAL [Concomitant]
     Indication: MALABSORPTION
     Dosage: UNK, 2/D
     Dates: start: 20030501
  11. NEXIUM [Concomitant]
     Dosage: 40 MG, DAILY (1/D)
  12. COZAAR [Concomitant]
     Dosage: 50 MG, DAILY (1/D)
  13. BUFFERIN [Concomitant]
     Dosage: 325 MG, DAILY (1/D)
  14. VITAMIN D [Concomitant]
     Indication: MALABSORPTION
     Dosage: UNK, EVERY 6 HRS
     Dates: start: 20030501
  15. NIASPAN [Concomitant]
     Dosage: 500 MG, EACH EVENING

REACTIONS (8)
  - ANOREXIA [None]
  - ASTHENIA [None]
  - BLADDER CANCER [None]
  - IMPAIRED HEALING [None]
  - MALAISE [None]
  - PAIN [None]
  - PROSTATITIS [None]
  - WEIGHT DECREASED [None]
